FAERS Safety Report 8037134-9 (Version None)
Quarter: 2012Q1

REPORT INFORMATION
  Report Type: 
  Country: None (occurrence: None)
  Receive Date: 20120111
  Receipt Date: 20120106
  Transmission Date: 20120608
  Serious: Yes (Other)
  Sender: FDA-Public Use
  Company Number: US-BAYER-2012-001301

PATIENT
  Age: 28 Year
  Sex: Female

DRUGS (2)
  1. MIRENA [Suspect]
     Indication: CONTRACEPTION
     Dosage: UNK
     Dates: start: 20110621, end: 20111122
  2. MIRENA [Suspect]
     Dosage: UNK
     Dates: start: 20111122

REACTIONS (2)
  - INTRA-UTERINE CONTRACEPTIVE DEVICE REMOVAL [None]
  - CERVICAL DYSPLASIA [None]
